FAERS Safety Report 5140953-X (Version None)
Quarter: 2006Q4

REPORT INFORMATION
  Report Type: 
  Country: None (occurrence: None)
  Receive Date: 20061027
  Receipt Date: 20061027
  Transmission Date: 20070319
  Serious: Yes (Other)
  Sender: FDA-Public Use
  Company Number: None

PATIENT
  Sex: 0

DRUGS (1)
  1. COPPERTONE SPORT DRY LOTION, SPF 30 (HOMOSALATE/ OCTINOXATE/OCTYL SALI [Suspect]
     Indication: PROPHYLAXIS AGAINST SOLAR RADIATION
     Dosage: TOP
     Route: 061

REACTIONS (1)
  - ANAPHYLACTIC REACTION [None]
